FAERS Safety Report 24299234 (Version 1)
Quarter: 2024Q3

REPORT INFORMATION
  Report Type: Spontaneous
  Country: US (occurrence: US)
  Receive Date: 20240909
  Receipt Date: 20240909
  Transmission Date: 20241017
  Serious: No
  Sender: PFIZER
  Company Number: US-PFIZER INC-202400249747

PATIENT
  Age: 16 Year
  Sex: Male
  Weight: 70.31 kg

DRUGS (1)
  1. GENOTROPIN [Suspect]
     Active Substance: SOMATROPIN
     Indication: Growth disorder
     Dosage: 2.8 MG, DAILY
     Dates: start: 202206, end: 20240730

REACTIONS (1)
  - Therapeutic response unexpected [Unknown]
